FAERS Safety Report 6792751-9 (Version None)
Quarter: 2010Q2

REPORT INFORMATION
  Report Type: 
  Country: None (occurrence: None)
  Receive Date: 20100624
  Receipt Date: 20081124
  Transmission Date: 20101027
  Serious: No
  Sender: FDA-Public Use
  Company Number: US-PFIZER INC-2008069009

PATIENT
  Sex: Female
  Weight: 72.57 kg

DRUGS (2)
  1. GEODON [Suspect]
     Indication: BIPOLAR DISORDER
     Dates: start: 20070801, end: 20070901
  2. CELEXA [Concomitant]

REACTIONS (1)
  - HYPERSENSITIVITY [None]
